FAERS Safety Report 9463835 (Version 2)
Quarter: 2013Q4

REPORT INFORMATION
  Report Type: Spontaneous
  Country: US (occurrence: US)
  Receive Date: 20130819
  Receipt Date: 20131010
  Transmission Date: 20140711
  Serious: Yes (Other)
  Sender: FDA-Public Use
  Company Number: US-PFIZER INC-2013238755

PATIENT
  Age: 38 Year
  Sex: Female
  Weight: 76.2 kg

DRUGS (20)
  1. PRISTIQ [Suspect]
     Indication: DEPRESSION
     Dosage: 200 MG, DAILY
     Route: 048
     Dates: start: 2012, end: 20130617
  2. ZIPRASIDONE [Concomitant]
     Indication: DEPRESSION
     Dosage: 200 MG, DAILY
     Route: 048
  3. BACLOFEN [Concomitant]
     Indication: MUSCLE SPASMS
     Dosage: 60 MG, DAILY
  4. ZOLPIDEM [Concomitant]
     Indication: SLEEP DISORDER
     Dosage: 10 MG, DAILY
  5. DEXILANT [Concomitant]
     Dosage: 60 MG, DAILY
  6. CLONAZEPAM [Concomitant]
     Dosage: 5 MG, 2X/DAY
  7. CRESTOR [Concomitant]
     Indication: BLOOD CHOLESTEROL INCREASED
     Dosage: 5 MG, DAILY
  8. OXYBUTYNIN [Concomitant]
     Indication: URINARY INCONTINENCE
     Dosage: 5 MG, DAILY
  9. BUPROPION XL [Concomitant]
     Indication: DEPRESSION
     Dosage: 300 MG, DAILY
  10. BUPROPION ER [Concomitant]
     Indication: DEPRESSION
     Dosage: 150 MG, DAILY
  11. TOPIRAMATE [Concomitant]
     Indication: DEPRESSION
     Dosage: 100 MG, DAILY
  12. FERROUS SULPHATE [Concomitant]
     Indication: IRON DEFICIENCY
     Dosage: 5 G, DAILY
  13. WELLBUTRIN XL [Concomitant]
     Dosage: UNK
  14. GEODON [Concomitant]
     Dosage: UNK
  15. TRAZODONE [Concomitant]
     Dosage: UNK
  16. TRAMADOL [Concomitant]
     Dosage: UNK
  17. MELOXICAM [Concomitant]
     Dosage: UNK
  18. XOPENEX [Concomitant]
     Dosage: UNK
  19. MIRAPEX [Concomitant]
     Dosage: UNK
  20. DIOCTYL SODIUM SULFOSUCCINATE [Concomitant]
     Dosage: UNK

REACTIONS (2)
  - Breast cancer female [Unknown]
  - Alopecia [Not Recovered/Not Resolved]
